FAERS Safety Report 10216988 (Version 2)
Quarter: 2014Q2

REPORT INFORMATION
  Report Type: Report from Study
  Country: BR (occurrence: BR)
  Receive Date: 20140604
  Receipt Date: 20140620
  Transmission Date: 20141212
  Serious: Yes (Disabling, Other)
  Sender: FDA-Public Use
  Company Number: BR-ABBVIE-14P-020-1242133-00

PATIENT
  Age: 69 Year
  Sex: Female
  Weight: 79 kg

DRUGS (10)
  1. HUMIRA [Suspect]
     Indication: PSORIATIC ARTHROPATHY
     Route: 058
     Dates: start: 20131030, end: 20140509
  2. HUMIRA [Suspect]
     Route: 058
  3. LOSARTAN [Concomitant]
     Indication: BLOOD PRESSURE ABNORMAL
     Route: 048
     Dates: start: 2012
  4. LAMOTRIGINE [Concomitant]
     Indication: ANXIETY
     Route: 048
     Dates: start: 2012
  5. ROXFLAN [Concomitant]
     Indication: BLOOD PRESSURE ABNORMAL
     Dosage: AT NIGHT
     Route: 048
     Dates: start: 2012
  6. PANTOPRAZOLE [Concomitant]
     Indication: GASTRIC DISORDER
     Route: 048
     Dates: start: 2012
  7. PANTOPRAZOLE [Concomitant]
     Indication: PROPHYLAXIS
  8. TECNOMET [Concomitant]
     Indication: ARTHRITIS
  9. SYNTHROID [Concomitant]
     Indication: THYROID DISORDER
     Route: 048
  10. PURAN T4 [Concomitant]
     Indication: THYROID DISORDER
     Route: 048

REACTIONS (7)
  - Osteoarthritis [Recovered/Resolved]
  - Tendon rupture [Recovering/Resolving]
  - Joint injury [Recovered/Resolved]
  - Arthritis [Recovered/Resolved]
  - Tendon injury [Recovered/Resolved]
  - Tendonitis [Recovered/Resolved]
  - Psoriatic arthropathy [Unknown]
